FAERS Safety Report 9085141 (Version 1)
Quarter: 2013Q1

REPORT INFORMATION
  Report Type: Spontaneous
  Country: US (occurrence: US)
  Receive Date: 20130131
  Receipt Date: 20130131
  Transmission Date: 20140127
  Serious: Yes (Other)
  Sender: FDA-Public Use
  Company Number: US-PFIZER INC-2013038573

PATIENT
  Age: 56 Year
  Sex: Male

DRUGS (8)
  1. LIPITOR [Suspect]
     Dosage: UNK
  2. VIIBRYD [Suspect]
     Indication: DEPRESSION
     Dosage: 40 MG, 1X/DAY
     Route: 048
     Dates: start: 20120912
  3. BUSPAR [Concomitant]
     Dosage: UNK
  4. GLIPIZIDE [Concomitant]
     Dosage: UNK
  5. AMLODIPINE [Concomitant]
     Dosage: UNK
  6. LORAZEPAM [Concomitant]
     Dosage: UNK
  7. CIALIS [Concomitant]
     Dosage: UNK
  8. BENAZEPRIL [Concomitant]
     Dosage: UNK

REACTIONS (2)
  - Blood creatine phosphokinase increased [Unknown]
  - Myalgia [Recovering/Resolving]
